FAERS Safety Report 8871867 (Version 5)
Quarter: 2013Q2

REPORT INFORMATION
  Report Type: Report from Study
  Country: DE (occurrence: DE)
  Receive Date: 20121029
  Receipt Date: 20130617
  Transmission Date: 20140414
  Serious: Yes (Death, Hospitalization)
  Sender: FDA-Public Use
  Company Number: PHHO2012DE005484

PATIENT
  Age: 61 Year
  Sex: Male
  Weight: 82 kg

DRUGS (1)
  1. EVEROLIMUS [Suspect]
     Indication: LIVER TRANSPLANT
     Dosage: 2.5 MG, BID
     Route: 048
     Dates: start: 20101216

REACTIONS (4)
  - Coronary artery disease [Fatal]
  - Prostate cancer [Fatal]
  - Multi-organ failure [Fatal]
  - Myocardial infarction [Recovered/Resolved]
